FAERS Safety Report 10332788 (Version 1)
Quarter: 2014Q3

REPORT INFORMATION
  Report Type: Spontaneous
  Country: ZW (occurrence: None)
  Receive Date: 20140718
  Receipt Date: 20140718
  Transmission Date: 20150326
  Serious: Yes (Other)
  Sender: FDA-Public Use
  Company Number: 2014ZW00672

PATIENT

DRUGS (3)
  1. ABACAVIR [Suspect]
     Active Substance: ABACAVIR
     Indication: KAPOSI^S SARCOMA AIDS RELATED
  2. ZIDOVUDINE. [Suspect]
     Active Substance: ZIDOVUDINE
     Indication: KAPOSI^S SARCOMA AIDS RELATED
  3. LAMIVUDINE. [Suspect]
     Active Substance: LAMIVUDINE
     Indication: KAPOSI^S SARCOMA AIDS RELATED

REACTIONS (1)
  - Viral load increased [None]
